FAERS Safety Report 6181092-9 (Version None)
Quarter: 2009Q2

REPORT INFORMATION
  Report Type: 
  Country: None (occurrence: None)
  Receive Date: 20090506
  Receipt Date: 20090506
  Transmission Date: 20091009
  Serious: Yes (Hospitalization, Other)
  Sender: FDA-Public Use
  Company Number: US-PFIZER INC-2008159733

PATIENT
  Sex: Female
  Weight: 69.8 kg

DRUGS (9)
  1. MICRONASE [Suspect]
     Indication: DIABETES MELLITUS
     Dosage: 10 MG, 2X/DAY
     Dates: end: 20081223
  2. GLIBENCLAMIDE [Suspect]
     Indication: DIABETES MELLITUS
  3. GLIPIZIDE [Suspect]
     Indication: TYPE 2 DIABETES MELLITUS
     Dosage: 10 MG, 2X/DAY
     Dates: start: 20081224, end: 20090226
  4. AVANDIA [Suspect]
     Indication: DIABETES MELLITUS
  5. GLUCOPHAGE [Suspect]
     Indication: DIABETES MELLITUS
     Dosage: 750 MG, 2X/DAY
  6. GLUCOPHAGE [Suspect]
     Dosage: 1000 MG, 2X/DAY
     Dates: start: 20081221
  7. FOLIC ACID [Concomitant]
     Dosage: UNK
  8. ACETYLSALICYLIC ACID [Concomitant]
     Dosage: UNK
  9. POTASSIUM [Concomitant]
     Dosage: UNK

REACTIONS (13)
  - ASTHENIA [None]
  - BLOOD GLUCOSE DECREASED [None]
  - BLOOD GLUCOSE INCREASED [None]
  - BODY HEIGHT DECREASED [None]
  - CARDIAC DISORDER [None]
  - DIARRHOEA [None]
  - DIZZINESS [None]
  - FLATULENCE [None]
  - GLYCOSYLATED HAEMOGLOBIN INCREASED [None]
  - HYPOGLYCAEMIA [None]
  - PNEUMONIA [None]
  - TREMOR [None]
  - VISUAL IMPAIRMENT [None]
